FAERS Safety Report 20745190 (Version 1)
Quarter: 2022Q2

REPORT INFORMATION
  Report Type: Spontaneous
  Country: US (occurrence: US)
  Receive Date: 20220425
  Receipt Date: 20220425
  Transmission Date: 20220721
  Serious: Yes (Hospitalization, Other)
  Sender: FDA-Public Use
  Company Number: US-BAYER-2022A054902

PATIENT
  Age: 66 Year
  Sex: Male

DRUGS (3)
  1. ASPIRIN [Suspect]
     Active Substance: ASPIRIN
  2. WARFARIN [Suspect]
     Active Substance: WARFARIN
  3. ENOXAPARIN [Suspect]
     Active Substance: ENOXAPARIN

REACTIONS (4)
  - Haematoma [None]
  - Haemoglobin decreased [None]
  - Labelled drug-drug interaction medication error [None]
  - Syncope [None]
